FAERS Safety Report 17223701 (Version 1)
Quarter: 2020Q1

REPORT INFORMATION
  Report Type: Spontaneous
  Country: NL (occurrence: NL)
  Receive Date: 20200102
  Receipt Date: 20200102
  Transmission Date: 20200409
  Serious: Yes (Other)
  Sender: FDA-Public Use
  Company Number: NL-ACCORD-168030

PATIENT
  Age: 44 Year
  Sex: Female

DRUGS (10)
  1. QUETIAPINE. [Suspect]
     Active Substance: QUETIAPINE
     Indication: PRODUCT USED FOR UNKNOWN INDICATION
     Dosage: 200 MG, QD (1 TIME DAILY, 1 TABLET)
     Dates: start: 2011
  2. HALOPERIDOL. [Concomitant]
     Active Substance: HALOPERIDOL
     Dosage: 1 TIME DAILY 1 TABLET, 1 TIME DAILY 2 TABLETS
  3. PANTOPRAZOLE [Concomitant]
     Active Substance: PANTOPRAZOLE
     Dosage: 1 TIME DAILY, 1 TABLET
  4. ZOPICLONE [Concomitant]
     Active Substance: ZOPICLONE
     Dosage: 1 TIME DAILY, 1 TABLET
  5. PHENPROCOUMON [Concomitant]
     Active Substance: PHENPROCOUMON
     Dosage: ACCORDING TO SCHEME THROMBOSIS SERVICE
  6. TRANYLCYPROMINE/TRANYLCYPROMINE SULFATE [Suspect]
     Active Substance: TRANYLCYPROMINE
     Indication: DEPRESSION
     Dosage: 60MG A DAY, TAKEN IN THE MORNING, 1 TIME DAILY, 3 TABLETS
     Dates: start: 20160721
  7. DESOGESTREL [Concomitant]
     Active Substance: DESOGESTREL
     Dosage: 1 TIME DAILY, 2 TABLETS
  8. COLECALCIFEROL [Concomitant]
     Active Substance: CHOLECALCIFEROL
     Dosage: 5600 IU, QW (1 TABLET WEEKLY)
  9. ALPRAZOLAM. [Concomitant]
     Active Substance: ALPRAZOLAM
     Indication: PRODUCT USED FOR UNKNOWN INDICATION
     Dosage: 0.5 MG (AS REQUIRED)
  10. THYRAX DUOTAB [Concomitant]
     Active Substance: LEVOTHYROXINE
     Dosage: 3.5 DF, QD (1 TIME DAILY, 3.5 TABLETS)

REACTIONS (3)
  - Contraindicated product administered [Unknown]
  - Hypertensive crisis [Recovered/Resolved]
  - Hypertension [Recovered/Resolved]

NARRATIVE: CASE EVENT DATE: 2018
